FAERS Safety Report 10187587 (Version 1)
Quarter: 2014Q2

REPORT INFORMATION
  Report Type: Spontaneous
  Country: US (occurrence: US)
  Receive Date: 20140522
  Receipt Date: 20140522
  Transmission Date: 20141212
  Serious: No
  Sender: FDA-Public Use
  Company Number: US-SANOFI-AVENTIS-2013SA076693

PATIENT
  Age: 87 Year
  Sex: Female

DRUGS (7)
  1. LANTUS [Suspect]
     Dosage: DOSE:20 UNIT(S)
     Route: 051
     Dates: start: 20130724
  2. AMBIEN [Suspect]
     Route: 065
  3. NOVOLOG [Concomitant]
     Dosage: FREQ: AT EACH MEAL DOSE:4 UNIT(S)
  4. DIOVANE [Concomitant]
  5. ASPIRIN [Concomitant]
  6. ATORVASTATIN [Concomitant]
  7. METOPROLOL [Concomitant]

REACTIONS (2)
  - Hyperhidrosis [Unknown]
  - Erythema [Unknown]
